FAERS Safety Report 18253262 (Version 1)
Quarter: 2020Q3

REPORT INFORMATION
  Report Type: Spontaneous
  Country: FR (occurrence: FR)
  Receive Date: 20200910
  Receipt Date: 20200910
  Transmission Date: 20201103
  Serious: Yes (Other)
  Sender: FDA-Public Use
  Company Number: NVSC2020FR240845

PATIENT
  Age: 71 Year
  Sex: Male

DRUGS (9)
  1. SEROPLEX [Concomitant]
     Active Substance: ESCITALOPRAM OXALATE
     Indication: PRODUCT USED FOR UNKNOWN INDICATION
     Dosage: UNK
     Route: 065
  2. SOLUPRED (PREDNISOLONE) [Suspect]
     Active Substance: PREDNISOLONE
     Indication: PREMEDICATION
     Dosage: 40 MG, QD
     Route: 048
     Dates: start: 20200730, end: 20200804
  3. HOLOXAN [Suspect]
     Active Substance: IFOSFAMIDE
     Indication: ALVEOLAR SOFT PART SARCOMA
     Dosage: 2500 MG/M2
     Route: 042
     Dates: start: 20200729, end: 20200803
  4. DOXIL [Suspect]
     Active Substance: DOXORUBICIN HYDROCHLORIDE
     Indication: ALVEOLAR SOFT PART SARCOMA
     Dosage: 60 MG/M2
     Route: 042
     Dates: start: 20200729, end: 20200729
  5. ALIZAPRIDE HYDROCHLORIDE [Suspect]
     Active Substance: ALIZAPRIDE HYDROCHLORIDE
     Indication: PREMEDICATION
     Dosage: SOLUTION FOR INJECTION
     Route: 042
     Dates: start: 20200729
  6. LEXOMIL [Concomitant]
     Active Substance: BROMAZEPAM
     Indication: PRODUCT USED FOR UNKNOWN INDICATION
     Dosage: UNK
     Route: 065
  7. OXYCONTIN [Concomitant]
     Active Substance: OXYCODONE HYDROCHLORIDE
     Indication: PRODUCT USED FOR UNKNOWN INDICATION
     Dosage: UNK
     Route: 065
  8. TAHOR [Concomitant]
     Active Substance: ATORVASTATIN CALCIUM
     Indication: PRODUCT USED FOR UNKNOWN INDICATION
     Dosage: UNK
     Route: 065
  9. ONDANSETRON HYDROCHLORIDE. [Suspect]
     Active Substance: ONDANSETRON HYDROCHLORIDE
     Indication: PREMEDICATION
     Dosage: 8 MG, QD (SOLUTION FOR INJECTION IN PRE?FILLED SYRINGE)
     Route: 042
     Dates: start: 20200730, end: 20200803

REACTIONS (3)
  - Product use in unapproved indication [Unknown]
  - Vomiting [Recovered/Resolved]
  - Off label use [Unknown]

NARRATIVE: CASE EVENT DATE: 20200731
